FAERS Safety Report 21982624 (Version 6)
Quarter: 2024Q1

REPORT INFORMATION
  Report Type: Spontaneous
  Country: US (occurrence: US)
  Receive Date: 20230213
  Receipt Date: 20240129
  Transmission Date: 20240409
  Serious: Yes (Other)
  Sender: FDA-Public Use
  Company Number: US-BRISTOL-MYERS SQUIBB COMPANY-2023-020421

PATIENT
  Age: 73 Year
  Sex: Male

DRUGS (2)
  1. LENALIDOMIDE [Suspect]
     Active Substance: LENALIDOMIDE
     Indication: Thyroid mass
     Dosage: TAKE 1 CAPSULE BY MOUTH EVERY DAY FOR 14 DAYS ON AND 7 DAYS OFF
     Route: 048
     Dates: start: 20221213
  2. LENALIDOMIDE [Suspect]
     Active Substance: LENALIDOMIDE
     Indication: Plasma cell myeloma in remission
     Dosage: TAKE 1 CAPSULE BY MOUTH DAILY FOR 7 DAYS ON FOLLOWED BY 7 DAYS OFF, REPEAT.
     Route: 048

REACTIONS (6)
  - Rash [Recovered/Resolved]
  - Lower respiratory tract infection [Recovering/Resolving]
  - Product dose omission in error [Unknown]
  - Off label use [Unknown]
  - Nasopharyngitis [Unknown]
  - Bronchitis [Recovering/Resolving]
